FAERS Safety Report 5817254-7 (Version None)
Quarter: 2008Q3

REPORT INFORMATION
  Report Type: 
  Country: None (occurrence: None)
  Receive Date: 20080722
  Receipt Date: 20080710
  Transmission Date: 20090109
  Serious: Yes (Hospitalization)
  Sender: FDA-Public Use
  Company Number: US-BAYER-200824061NA

PATIENT
  Age: 33 Year
  Sex: Female
  Weight: 49 kg

DRUGS (8)
  1. BETASERON [Suspect]
     Indication: RELAPSING-REMITTING MULTIPLE SCLEROSIS
     Dosage: TOTAL DAILY DOSE: 8 MIU
     Route: 058
     Dates: start: 20050901, end: 20071214
  2. BETASERON [Suspect]
     Dosage: TOTAL DAILY DOSE: 8 MIU
     Route: 058
     Dates: start: 20080108
  3. BETASERON [Suspect]
     Route: 058
     Dates: start: 20080628
  4. VICODIN [Suspect]
     Dates: start: 20080507
  5. PREDNISONE TAB [Concomitant]
     Dates: start: 19951101, end: 20080701
  6. PREDNISONE TAB [Concomitant]
     Dosage: TOTAL DAILY DOSE: 10 MG
     Dates: start: 20080701
  7. BACLOFEN [Concomitant]
     Dosage: TOTAL DAILY DOSE: 60  MG
     Dates: start: 20050801
  8. MECLIZINE [Concomitant]
     Dosage: TOTAL DAILY DOSE: 75 MG
     Dates: start: 20050801

REACTIONS (3)
  - ABDOMINAL TENDERNESS [None]
  - CONSTIPATION [None]
  - INJECTION SITE ABSCESS [None]
